FAERS Safety Report 9442539 (Version 3)
Quarter: 2013Q4

REPORT INFORMATION
  Report Type: Spontaneous
  Country: IT (occurrence: IT)
  Receive Date: 20130806
  Receipt Date: 20131108
  Transmission Date: 20140711
  Serious: Yes (Other)
  Sender: FDA-Public Use
  Company Number: IT-PFIZER INC-2013225809

PATIENT
  Age: 48 Year
  Sex: 0

DRUGS (4)
  1. FARMORUBICINA [Suspect]
     Indication: BREAST CANCER
     Dosage: 159.3 MG, CYCLIC
     Route: 040
     Dates: start: 20130308
  2. ENDOXAN-BAXTER [Suspect]
     Indication: BREAST CANCER
     Dosage: 1062 MG, CYCLIC
     Route: 040
     Dates: start: 20130308
  3. ONDANSETRONE HIKMA [Concomitant]
     Dosage: 8 MG, UNK
     Route: 042
     Dates: start: 20130308
  4. SOLDESAM [Concomitant]
     Dosage: 4 MG, UNK
     Route: 040
     Dates: start: 20130308

REACTIONS (6)
  - Asthenia [Recovering/Resolving]
  - Nausea [Recovering/Resolving]
  - Vomiting [Recovering/Resolving]
  - Pain in extremity [Recovering/Resolving]
  - Faecaloma [Recovering/Resolving]
  - Mood swings [Recovering/Resolving]
